FAERS Safety Report 6752465-8 (Version None)
Quarter: 2010Q2

REPORT INFORMATION
  Report Type: 
  Country: None (occurrence: None)
  Receive Date: 20100601
  Receipt Date: 20100601
  Transmission Date: 20101027
  Serious: Yes (Other)
  Sender: FDA-Public Use
  Company Number: None

PATIENT
  Age: 84 Year
  Sex: Male

DRUGS (1)
  1. METOCLOPRAMIDE [Suspect]
     Indication: HICCUPS
     Dosage: 10MG QID PO
     Route: 048
     Dates: start: 20100413, end: 20100528

REACTIONS (3)
  - AMNESIA [None]
  - CONFUSIONAL STATE [None]
  - FATIGUE [None]
